FAERS Safety Report 18074054 (Version 1)
Quarter: 2020Q3

REPORT INFORMATION
  Report Type: Other
  Country: CA (occurrence: CA)
  Receive Date: 20200727
  Receipt Date: 20200727
  Transmission Date: 20201103
  Serious: Yes (Other)
  Sender: FDA-Public Use
  Company Number: CA-SAOL THERAPEUTICS-2020SAO00022

PATIENT
  Age: 6 Year
  Sex: Female

DRUGS (7)
  1. CYTOGAM [Suspect]
     Active Substance: HUMAN CYTOMEGALOVIRUS IMMUNE GLOBULIN
     Indication: CYTOMEGALOVIRUS INFECTION
     Dosage: 1 DOSAGE UNITS, 2X/WEEK
  2. TACROLIMUS. [Suspect]
     Active Substance: TACROLIMUS
     Indication: IMMUNOSUPPRESSION
  3. MYCOPHENOLATE MOFETIL. [Suspect]
     Active Substance: MYCOPHENOLATE MOFETIL
     Indication: IMMUNOSUPPRESSION
  4. GANCICLOVIR. [Suspect]
     Active Substance: GANCICLOVIR
     Dosage: 7.5 MG/KG, 2X/DAY
  5. GANCICLOVIR. [Suspect]
     Active Substance: GANCICLOVIR
     Indication: CYTOMEGALOVIRUS INFECTION
     Dosage: 10 MG/KG, 2X/DAY
  6. PREDNISONE (MAH UNKNOWN) [Suspect]
     Active Substance: PREDNISONE
     Indication: IMMUNOSUPPRESSION
  7. FOSCARNET SODIUM HYDRATE [Concomitant]
     Active Substance: FOSCARNET SODIUM

REACTIONS (4)
  - Drug resistance [Unknown]
  - Gastroenteritis [Unknown]
  - Product use issue [Unknown]
  - Cytomegalovirus infection [Unknown]
